FAERS Safety Report 25755041 (Version 2)
Quarter: 2025Q3

REPORT INFORMATION
  Report Type: Spontaneous
  Country: IN (occurrence: IN)
  Receive Date: 20250903
  Receipt Date: 20250927
  Transmission Date: 20251021
  Serious: Yes (Hospitalization, Other)
  Sender: LUPIN
  Company Number: IN-LUPIN PHARMACEUTICALS INC.-2025-07710

PATIENT
  Age: 58 Year
  Weight: 53 kg

DRUGS (5)
  1. ETHAMBUTOL HYDROCHLORIDE [Suspect]
     Active Substance: ETHAMBUTOL HYDROCHLORIDE
     Indication: Tuberculosis
     Dosage: 1200 MILLIGRAM, QD
     Route: 065
  2. RIFAMPIN [Suspect]
     Active Substance: RIFAMPIN
     Indication: Tuberculosis
     Route: 065
  3. PYRAZINAMIDE [Suspect]
     Active Substance: PYRAZINAMIDE
     Indication: Tuberculosis
     Route: 065
  4. PYRAZINAMIDE [Suspect]
     Active Substance: PYRAZINAMIDE
     Indication: Tuberculosis
     Route: 065
  5. ISONIAZID [Suspect]
     Active Substance: ISONIAZID
     Indication: Tuberculosis
     Route: 065

REACTIONS (4)
  - Platelet count decreased [Unknown]
  - Ascites [Unknown]
  - Chromaturia [Unknown]
  - Abdominal pain upper [Unknown]
